FAERS Safety Report 8806911 (Version 2)
Quarter: 2012Q4

REPORT INFORMATION
  Report Type: 
  Country: US (occurrence: US)
  Receive Date: 20120925
  Receipt Date: 20121016
  Transmission Date: 20130627
  Serious: Yes (Death, Hospitalization, Other)
  Sender: FDA-Public Use
  Company Number: US-ROCHE-1126236

PATIENT
  Sex: Female

DRUGS (7)
  1. AVASTIN [Suspect]
     Indication: BREAST CANCER FEMALE
     Route: 042
     Dates: start: 20061212
  2. AVASTIN [Suspect]
     Indication: BONE NEOPLASM MALIGNANT
  3. AVASTIN [Suspect]
     Indication: BONE NEOPLASM MALIGNANT
  4. XELODA [Suspect]
     Indication: BREAST CANCER
     Route: 065
     Dates: start: 200611
  5. ARANESP [Concomitant]
     Route: 065
     Dates: start: 200611
  6. MEGACE [Concomitant]
  7. COMPAZINE [Concomitant]

REACTIONS (8)
  - Death [Fatal]
  - Metastases to pleura [Unknown]
  - Metastases to liver [Unknown]
  - Decreased appetite [Unknown]
  - Weight decreased [Unknown]
  - Dyspnoea [Unknown]
  - Chest pain [Unknown]
  - Nausea [Unknown]
